FAERS Safety Report 5874282-3 (Version None)
Quarter: 2008Q3

REPORT INFORMATION
  Report Type: 
  Country: None (occurrence: None)
  Receive Date: 20080908
  Receipt Date: 20080828
  Transmission Date: 20090109
  Serious: Yes (Hospitalization)
  Sender: FDA-Public Use
  Company Number: JP-AMGEN-US295232

PATIENT
  Sex: Female
  Weight: 40 kg

DRUGS (8)
  1. ENBREL [Suspect]
     Indication: RHEUMATOID ARTHRITIS
     Route: 058
     Dates: start: 20080520, end: 20080702
  2. PROTECADIN [Concomitant]
     Indication: GASTRITIS
     Route: 048
     Dates: start: 20000819
  3. ALPROSTADIL [Concomitant]
     Indication: THROMBOANGIITIS OBLITERANS
     Dosage: UNSPECIFIED
     Route: 042
     Dates: start: 20080620
  4. CYANOCOBALAMIN [Concomitant]
     Dosage: UNSPECIFIED
     Route: 048
  5. FERROMIA [Concomitant]
     Indication: IRON DEFICIENCY ANAEMIA
     Dosage: UNSPECIFIED
     Route: 048
     Dates: start: 20030520
  6. PURSENNIDE [Concomitant]
     Indication: CONSTIPATION
     Route: 048
     Dates: start: 20051212
  7. PRORENAL [Concomitant]
     Indication: THROMBOANGIITIS OBLITERANS
     Route: 048
     Dates: start: 20080620
  8. PREDONINE [Concomitant]
     Indication: RHEUMATOID ARTHRITIS
     Route: 048
     Dates: start: 20030520

REACTIONS (5)
  - ARTHRALGIA [None]
  - CONDITION AGGRAVATED [None]
  - DEMYELINATION [None]
  - MUSCULAR WEAKNESS [None]
  - NEUROPATHY PERIPHERAL [None]
